FAERS Safety Report 7638222-9 (Version None)
Quarter: 2011Q3

REPORT INFORMATION
  Report Type: 
  Country: None (occurrence: None)
  Receive Date: 20110727
  Receipt Date: 20110718
  Transmission Date: 20111222
  Serious: Yes (Other)
  Sender: FDA-Public Use
  Company Number: US-JNJFOC-20110707568

PATIENT
  Sex: Male

DRUGS (1)
  1. REMICADE [Suspect]
     Indication: COLITIS ULCERATIVE
     Dosage: INFLIXIMAB HELD ON 18-JUL-2011 RESCHEDULED FOR 01-AUG-2011
     Route: 042
     Dates: start: 20060414

REACTIONS (5)
  - DRUG INEFFECTIVE [None]
  - RHINORRHOEA [None]
  - MALAISE [None]
  - HAEMATOCHEZIA [None]
  - COUGH [None]
